FAERS Safety Report 12167620 (Version 5)
Quarter: 2016Q2

REPORT INFORMATION
  Report Type: Spontaneous
  Country: CN (occurrence: CN)
  Receive Date: 20160310
  Receipt Date: 20160419
  Transmission Date: 20160815
  Serious: Yes (Other)
  Sender: FDA-Public Use
  Company Number: PHHY2016CN030291

PATIENT
  Age: 47 Year
  Sex: Male

DRUGS (3)
  1. SEBIVO [Suspect]
     Active Substance: TELBIVUDINE
     Indication: HEPATITIS B SURFACE ANTIGEN POSITIVE
     Dosage: 600 MG, QD
     Route: 048
  2. SEBIVO [Suspect]
     Active Substance: TELBIVUDINE
     Indication: HEPATITIS B CORE ANTIBODY POSITIVE
  3. SEBIVO [Suspect]
     Active Substance: TELBIVUDINE
     Indication: HEPATITIS B E ANTIGEN POSITIVE

REACTIONS (8)
  - Alanine aminotransferase increased [Unknown]
  - Aspartate aminotransferase increased [Unknown]
  - Liver function test abnormal [Unknown]
  - Drug ineffective [Unknown]
  - Rhabdomyolysis [Unknown]
  - Hepatitis B DNA increased [Unknown]
  - Blood creatine phosphokinase increased [Unknown]
  - Myalgia [Recovered/Resolved]

NARRATIVE: CASE EVENT DATE: 20160301
